FAERS Safety Report 9067615 (Version 1)
Quarter: 2013Q1

REPORT INFORMATION
  Report Type: Spontaneous
  Country: FR (occurrence: FR)
  Receive Date: 20130128
  Receipt Date: 20130128
  Transmission Date: 20140127
  Serious: Yes (Hospitalization)
  Sender: FDA-Public Use
  Company Number: FR-PFIZER INC-2013030186

PATIENT
  Age: 66 Year
  Sex: Male

DRUGS (14)
  1. NEURONTIN [Suspect]
     Dosage: UNK MG, 2X/DAY
     Route: 048
     Dates: start: 201206
  2. PREVISCAN [Suspect]
     Dosage: 20 MG
     Route: 048
     Dates: start: 20120815, end: 20120910
  3. INEXIUM [Suspect]
     Dosage: 40 MG, 1X/DAY
     Route: 048
     Dates: start: 201208
  4. PRADAXA [Suspect]
     Dosage: 110 MG, 2X/DAY
     Route: 048
     Dates: start: 2011, end: 20120913
  5. EVEROLIMUS [Suspect]
     Dosage: UNK
     Dates: start: 20120814
  6. CRESTOR [Concomitant]
     Dosage: 5 MG, 1X/DAY
     Dates: start: 2009
  7. LASILIX [Concomitant]
     Dosage: 40 MG, 1X/DAY
     Dates: start: 2004
  8. HEMIGOXINE NATIVELLE [Concomitant]
     Dosage: UNK
     Dates: start: 2005
  9. RAMIPRIL [Concomitant]
     Dosage: 2.5 MG, 1X/DAY
  10. ALDACTONE [Concomitant]
     Dosage: 25 MG, 1X/DAY
     Dates: start: 2011
  11. BISOPROLOL [Concomitant]
     Dosage: 7.5 MG, 1X/DAY
     Dates: start: 2006
  12. KARDEGIC [Concomitant]
     Dosage: 75 MG, 1X/DAY
     Dates: start: 2005
  13. LANTUS [Concomitant]
     Dosage: 34 IU, 1X/DAY
     Route: 058
  14. NOVOMIX [Concomitant]
     Dosage: 9IU MORNING, 10IU NOON, 11IU EVENING

REACTIONS (1)
  - Anti factor VIII antibody test [Not Recovered/Not Resolved]
